FAERS Safety Report 23443123 (Version 2)
Quarter: 2024Q1

REPORT INFORMATION
  Report Type: Spontaneous
  Country: DE (occurrence: DE)
  Receive Date: 20240125
  Receipt Date: 20240301
  Transmission Date: 20240409
  Serious: Yes (Hospitalization, Other)
  Sender: FDA-Public Use
  Company Number: DE-PFIZER INC-PV202400010090

PATIENT
  Age: 47 Year
  Sex: Male
  Weight: 78 kg

DRUGS (3)
  1. CIBINQO [Suspect]
     Active Substance: ABROCITINIB
     Indication: Dermatitis atopic
     Dosage: 200 MG, 1X/DAY
     Route: 048
     Dates: start: 202301, end: 202310
  2. FLUTICASONE PROPIONATE [Concomitant]
     Active Substance: FLUTICASONE PROPIONATE
     Dosage: 100 UG, 1X/DAY, FOR MANY YEARS
  3. LEVOCETIRIZINE [Concomitant]
     Active Substance: LEVOCETIRIZINE
     Dosage: 5 MG, AS NEEDED, FOR MANY YEARS

REACTIONS (3)
  - Eczema herpeticum [Recovered/Resolved]
  - Herpes ophthalmic [Recovered/Resolved]
  - Superinfection bacterial [Recovered/Resolved]

NARRATIVE: CASE EVENT DATE: 20230501
